FAERS Safety Report 5840345-1 (Version None)
Quarter: 2008Q3

REPORT INFORMATION
  Report Type: 
  Country: None (occurrence: None)
  Receive Date: 20080811
  Receipt Date: 20080729
  Transmission Date: 20090109
  Serious: Yes (Death)
  Sender: FDA-Public Use
  Company Number: FR-MERCK-0807USA05608

PATIENT
  Age: 39 Year
  Sex: Female

DRUGS (4)
  1. ALPHAREDISOL [Suspect]
     Indication: VITAMIN B12 DEFICIENCY
     Route: 042
  2. FOLINIC ACID [Concomitant]
     Indication: VITAMIN B12 DEFICIENCY
     Route: 048
  3. BETAINE [Concomitant]
     Indication: VITAMIN B12 DEFICIENCY
     Route: 048
  4. HYDROXOCOBALAMIN [Concomitant]
     Route: 048

REACTIONS (2)
  - DRUG INEFFECTIVE [None]
  - PULMONARY EMBOLISM [None]
